FAERS Safety Report 23110148 (Version 1)
Quarter: 2023Q4

REPORT INFORMATION
  Report Type: Spontaneous
  Country: US (occurrence: None)
  Receive Date: 20231024
  Receipt Date: 20231024
  Transmission Date: 20240110
  Serious: Yes (Hospitalization)
  Sender: FDA-Public Use
  Company Number: None

PATIENT
  Age: 66 Year
  Sex: Male
  Weight: 146 kg

DRUGS (1)
  1. LOSARTAN POTASSIUM [Suspect]
     Active Substance: LOSARTAN POTASSIUM
     Dates: start: 20220825, end: 20230513

REACTIONS (4)
  - Acute kidney injury [None]
  - Blood pressure increased [None]
  - Urine output decreased [None]
  - Localised oedema [None]

NARRATIVE: CASE EVENT DATE: 20230505
